FAERS Safety Report 8288852-9 (Version None)
Quarter: 2012Q2

REPORT INFORMATION
  Report Type: 
  Country: None (occurrence: None)
  Receive Date: 20120417
  Receipt Date: 20120410
  Transmission Date: 20120825
  Serious: No
  Sender: FDA-Public Use
  Company Number: US-BIOGENIDEC-2012BI012302

PATIENT
  Age: 26 Year
  Sex: Female

DRUGS (2)
  1. BACLOFEN [Concomitant]
     Indication: MUSCLE RELAXANT THERAPY
  2. AVONEX [Suspect]
     Indication: MULTIPLE SCLEROSIS
     Route: 030
     Dates: start: 20120302

REACTIONS (4)
  - LYMPHADENOPATHY [None]
  - PAIN [None]
  - HYPERHIDROSIS [None]
  - MYALGIA [None]
